FAERS Safety Report 11363866 (Version 1)
Quarter: 2015Q3

REPORT INFORMATION
  Report Type: Spontaneous
  Country: FR (occurrence: FR)
  Receive Date: 20150811
  Receipt Date: 20150811
  Transmission Date: 20151125
  Serious: Yes (Hospitalization)
  Sender: FDA-Public Use
  Company Number: FR-ROCHE-1619955

PATIENT
  Age: 82 Year
  Sex: Female

DRUGS (10)
  1. PREDNISONE. [Concomitant]
     Active Substance: PREDNISONE
  2. PANTOPRAZOLE [Concomitant]
     Active Substance: PANTOPRAZOLE SODIUM
  3. CARDENSIEL [Concomitant]
     Active Substance: BISOPROLOL FUMARATE
  4. ROCEPHINE [Suspect]
     Active Substance: CEFTRIAXONE SODIUM
     Indication: ERYSIPELAS
     Route: 058
     Dates: start: 20150605, end: 20150619
  5. ALDACTONE [Concomitant]
     Active Substance: SPIRONOLACTONE
  6. SINGULAIR [Concomitant]
     Active Substance: MONTELUKAST SODIUM
  7. PERINDOPRIL [Concomitant]
     Active Substance: PERINDOPRIL
  8. LERCAN [Concomitant]
     Active Substance: LERCANIDIPINE
  9. LASILIX [Concomitant]
     Active Substance: FUROSEMIDE
  10. DIFFU K [Concomitant]
     Active Substance: POTASSIUM CHLORIDE
     Route: 065

REACTIONS (4)
  - Eosinophilia [Recovering/Resolving]
  - Toxic skin eruption [Recovering/Resolving]
  - Erythema [Recovering/Resolving]
  - Renal failure [Recovering/Resolving]

NARRATIVE: CASE EVENT DATE: 20150628
